FAERS Safety Report 8630533 (Version 2)
Quarter: 2013Q2

REPORT INFORMATION
  Report Type: Spontaneous
  Country: US (occurrence: US)
  Receive Date: 20120622
  Receipt Date: 20130617
  Transmission Date: 20140414
  Serious: Yes (Hospitalization, Disabling)
  Sender: FDA-Public Use
  Company Number: US-ASTRAZENECA-2012SE34491

PATIENT
  Age: 57 Year
  Sex: Female
  Weight: 83.9 kg

DRUGS (13)
  1. NEXIUM [Suspect]
     Indication: GASTROOESOPHAGEAL REFLUX DISEASE
     Route: 048
  2. NEXIUM [Suspect]
     Indication: GASTROOESOPHAGEAL REFLUX DISEASE
     Dosage: 1 DAILY
     Route: 048
     Dates: start: 20070430
  3. NEXIUM [Suspect]
     Indication: GASTROOESOPHAGEAL REFLUX DISEASE
     Route: 048
     Dates: start: 20110905
  4. OXYCODONE [Concomitant]
  5. TYLENOL [Concomitant]
     Route: 048
  6. HYDROCODONE [Concomitant]
  7. PROPOXY [Concomitant]
  8. PRAVASTATIN [Concomitant]
  9. TRAMADOL [Concomitant]
  10. IBUPROFEN [Concomitant]
  11. LOVASTATIN [Concomitant]
  12. SULPHAMETHOXAZOLE [Concomitant]
  13. MELOXICAM [Concomitant]

REACTIONS (7)
  - Meniscus injury [Unknown]
  - Bipolar disorder [Unknown]
  - Osteoporosis [Unknown]
  - Foot fracture [Unknown]
  - Carpal tunnel syndrome [Unknown]
  - Bone pain [Unknown]
  - Bipolar I disorder [Unknown]
